FAERS Safety Report 8217910-X (Version None)
Quarter: 2012Q1

REPORT INFORMATION
  Report Type: 
  Country: None (occurrence: None)
  Receive Date: 20120319
  Receipt Date: 20120305
  Transmission Date: 20120608
  Serious: Yes (Life-Threatening, Other)
  Sender: FDA-Public Use
  Company Number: DE-ELI_LILLY_AND_COMPANY-DE201203001275

PATIENT
  Age: 81 Year
  Sex: Female

DRUGS (9)
  1. MELPERONE [Concomitant]
     Dosage: 12.5 MG, QD
     Route: 048
     Dates: start: 20111205
  2. SERTRALINE HYDROCHLORIDE [Concomitant]
     Dosage: 25 MG, QD
     Route: 048
     Dates: start: 20111118, end: 20111122
  3. CYMBALTA [Suspect]
     Dosage: UNK, UNKNOWN
     Route: 065
     Dates: start: 20111118, end: 20111123
  4. SERTRALINE HYDROCHLORIDE [Concomitant]
     Dosage: 50 MG, QD
     Route: 048
     Dates: start: 20111123, end: 20111201
  5. MELPERONE [Concomitant]
     Dosage: 37.5 MG, QD
     Route: 048
     Dates: start: 20111126, end: 20111204
  6. CYMBALTA [Suspect]
     Dosage: UNK, UNKNOWN
     Route: 065
  7. ZYPREXA [Suspect]
     Dosage: 10 MG, QD
     Route: 048
  8. MELPERONE [Concomitant]
     Dosage: 50 MG, QD
     Route: 048
     Dates: start: 20111124, end: 20111125
  9. SERTRALINE HYDROCHLORIDE [Concomitant]
     Dosage: 75 MG, QD
     Route: 048
     Dates: start: 20111202

REACTIONS (8)
  - ATRIAL FIBRILLATION [None]
  - CARDIOMYOPATHY [None]
  - NOROVIRUS TEST POSITIVE [None]
  - DEHYDRATION [None]
  - PALPITATIONS [None]
  - DIARRHOEA [None]
  - ATRIAL FLUTTER [None]
  - SYNCOPE [None]
